FAERS Safety Report 5123382-4 (Version None)
Quarter: 2006Q4

REPORT INFORMATION
  Report Type: 
  Country: None (occurrence: None)
  Receive Date: 20061005
  Receipt Date: 20060919
  Transmission Date: 20070319
  Serious: Yes (Hospitalization)
  Sender: FDA-Public Use
  Company Number: 230484

PATIENT
  Age: 55 Year
  Sex: Female
  Weight: 52.5 kg

DRUGS (11)
  1. AVASTIN [Suspect]
     Indication: COLORECTAL CANCER METASTATIC
     Dosage: 390 MG, Q3W
     Dates: start: 20060901
  2. CAPECITABINE(CAPACETABINE) [Suspect]
     Indication: COLORECTAL CANCER METASTATIC
     Dosage: 3000 MG, QD, ORAL
     Route: 048
     Dates: start: 20060901
  3. OXALIPLATIN [Suspect]
     Indication: COLORECTAL CANCER METASTATIC
     Dosage: 199 MG, Q3W
     Dates: start: 20060901
  4. FELBINAC (FELBINAC) [Concomitant]
  5. LAXOBERON (SODIUM PICOSULFATE) [Concomitant]
  6. METOCLOPRAMIDE (METOCLOPRAMIDE HYDROCHLORIDE) [Concomitant]
  7. PROCHLORPERAZINE MALEATE [Concomitant]
  8. DOMPERIDONE (DOMPERIDONE) [Concomitant]
  9. UREA (UREA) [Concomitant]
  10. LOXONIN (LOXOPROFEN SODIUM) [Concomitant]
  11. LACTOMIN (LACTOBACILLUS ACIDOPHILUS) [Concomitant]

REACTIONS (5)
  - ABDOMINAL PAIN [None]
  - BONE MARROW FAILURE [None]
  - DIARRHOEA [None]
  - NEUTROPENIC INFECTION [None]
  - PYREXIA [None]
